FAERS Safety Report 9068906 (Version 2)
Quarter: 2013Q4

REPORT INFORMATION
  Report Type: Report from Study
  Country: US (occurrence: US)
  Receive Date: 20130215
  Receipt Date: 20131105
  Transmission Date: 20140711
  Serious: Yes (Hospitalization)
  Sender: FDA-Public Use
  Company Number: US-ELI_LILLY_AND_COMPANY-US201205008124

PATIENT
  Sex: Female

DRUGS (11)
  1. TERIPARATIDE [Suspect]
     Indication: OSTEOPOROSIS
     Dosage: 20 UG, QD
     Route: 065
     Dates: start: 2002
  2. TERIPARATIDE [Suspect]
     Dosage: 20 UG, QD
     Route: 065
     Dates: start: 201201
  3. TERIPARATIDE [Suspect]
     Dosage: 20 UG, QD
     Route: 065
     Dates: end: 20121123
  4. TERIPARATIDE [Suspect]
     Dosage: UNK, QD
     Route: 065
     Dates: end: 201308
  5. ZOLOFT [Concomitant]
     Indication: PRODUCT USED FOR UNKNOWN INDICATION
     Dosage: 150 MG, UNK
     Route: 065
  6. KLONOPIN [Concomitant]
     Indication: PRODUCT USED FOR UNKNOWN INDICATION
     Dosage: UNK
     Route: 065
  7. CRESTOR [Concomitant]
     Indication: PRODUCT USED FOR UNKNOWN INDICATION
     Dosage: UNK
     Route: 065
  8. AMLODIPINE [Concomitant]
     Indication: PRODUCT USED FOR UNKNOWN INDICATION
     Dosage: UNK
     Route: 065
  9. BACLOFEN [Concomitant]
     Indication: PRODUCT USED FOR UNKNOWN INDICATION
     Dosage: UNK
     Route: 065
  10. LOSARTAN [Concomitant]
     Indication: PRODUCT USED FOR UNKNOWN INDICATION
     Dosage: UNK
     Route: 065
  11. ALLOPURINOL [Concomitant]
     Indication: PRODUCT USED FOR UNKNOWN INDICATION
     Dosage: UNK
     Route: 065

REACTIONS (23)
  - Coronary artery dissection [Unknown]
  - Anxiety [Unknown]
  - Tooth loss [Unknown]
  - Sleep apnoea syndrome [Unknown]
  - Pulmonary mass [Unknown]
  - Gait disturbance [Unknown]
  - Balance disorder [Unknown]
  - Dental caries [Unknown]
  - Osteitis [Unknown]
  - Pain in extremity [Unknown]
  - Contusion [Unknown]
  - Anxiety [Unknown]
  - Toothache [Unknown]
  - Pain in jaw [Unknown]
  - Impaired healing [Unknown]
  - Gingival disorder [Unknown]
  - Fall [Unknown]
  - Gingival pain [Unknown]
  - Tooth disorder [Unknown]
  - Blood uric acid increased [Unknown]
  - Muscle spasms [Unknown]
  - Pain [Recovering/Resolving]
  - Amnesia [Unknown]
